FAERS Safety Report 19797556 (Version 1)
Quarter: 2021Q3

REPORT INFORMATION
  Report Type: Spontaneous
  Country: US (occurrence: US)
  Receive Date: 20210907
  Receipt Date: 20210907
  Transmission Date: 20211014
  Serious: Yes (Other)
  Sender: FDA-Public Use
  Company Number: US-BAYER-2021-201773

PATIENT
  Age: 62 Year
  Sex: Female

DRUGS (8)
  1. OCALIVA [Concomitant]
     Active Substance: OBETICHOLIC ACID
     Dosage: 10 MG, QD
     Route: 048
     Dates: start: 20190515
  2. VITAMIN D3 [Concomitant]
     Active Substance: CHOLECALCIFEROL
  3. DRISDOL [Concomitant]
     Active Substance: ERGOCALCIFEROL
  4. ALEVE [Suspect]
     Active Substance: NAPROXEN SODIUM
     Indication: PAIN
     Dosage: UNK
  5. GOLYTELY [Concomitant]
     Active Substance: POLYETHYLENE GLYCOL 3350\POTASSIUM CHLORIDE\SODIUM BICARBONATE\SODIUM CHLORIDE\SODIUM SULFATE
     Dosage: UNK
     Dates: start: 20210428, end: 20210428
  6. ACTIGALL [Concomitant]
     Active Substance: URSODIOL
  7. TRICOR [TETRACYCLINE HYDROCHLORIDE] [Concomitant]
     Active Substance: TETRACYCLINE HYDROCHLORIDE
  8. HYDROXYCHLOROQUINE [Concomitant]
     Active Substance: HYDROXYCHLOROQUINE

REACTIONS (10)
  - Fatigue [Unknown]
  - Weight decreased [Unknown]
  - Oesophageal mass [Unknown]
  - Iron deficiency anaemia [Not Recovered/Not Resolved]
  - COVID-19 [Unknown]
  - Hepatic cirrhosis [Unknown]
  - Cholecystectomy [Unknown]
  - Haematochezia [Unknown]
  - Portal hypertensive gastropathy [Unknown]
  - Varices oesophageal [Unknown]
